FAERS Safety Report 7039743-2 (Version None)
Quarter: 2010Q4

REPORT INFORMATION
  Report Type: 
  Country: None (occurrence: None)
  Receive Date: 20101012
  Receipt Date: 20101005
  Transmission Date: 20110411
  Serious: Yes (Life-Threatening, Hospitalization)
  Sender: FDA-Public Use
  Company Number: GXKR2009DE02558

PATIENT
  Age: 56 Year
  Sex: Female
  Weight: 60 kg

DRUGS (17)
  1. BISOPROLOL (NGX) [Suspect]
     Indication: CORONARY ARTERY DISEASE
     Dosage: 5 MG, BID
     Route: 048
     Dates: start: 19780101, end: 20080601
  2. DOXAZOSIN MESYLATE [Suspect]
     Indication: HYPERTENSION
     Dosage: 4 MG, BID
     Route: 048
  3. RAMIPRIL [Suspect]
     Dosage: 5 MG, BID
     Route: 048
  4. DIGITOXIN [Suspect]
     Dosage: 0.105 MG, ONCE/SINGLE
     Route: 048
     Dates: start: 20040101
  5. DIGITOXIN [Suspect]
     Dosage: 0.07 MG, QD
     Route: 048
     Dates: start: 20040101, end: 20080601
  6. ALLOPURINOL [Concomitant]
     Indication: RENAL IMPAIRMENT
     Dosage: 150 MG, QD
     Route: 048
  7. DEKRISTOL [Concomitant]
     Indication: RENAL IMPAIRMENT
     Dosage: 2000 IU, UNK
     Route: 048
  8. RESTEX [Concomitant]
     Indication: RENAL IMPAIRMENT
     Route: 048
  9. RENAGEL [Concomitant]
     Indication: RENAL IMPAIRMENT
     Dosage: 800-1600-1600 MG
     Route: 048
  10. PANTHENOL [Concomitant]
     Indication: RENAL IMPAIRMENT
     Dosage: 100 MG, TID
     Route: 048
  11. SIMVASTATIN [Concomitant]
     Indication: CORONARY ARTERY DISEASE
     Dosage: 40 MG, QD
     Route: 048
  12. AEQUAMEN [Concomitant]
     Indication: DIZZINESS
     Dosage: 24 MG, UNK
     Route: 048
  13. PHOS-EX [Concomitant]
     Indication: RENAL IMPAIRMENT
     Dosage: 950 MG, TID
     Route: 048
  14. NEXIUM [Concomitant]
     Indication: PROPHYLAXIS AGAINST GASTROINTESTINAL ULCER
     Dosage: 40 MG, QD
     Route: 048
  15. LAXOBERAL ^BOEHRINGER INGELHEIM^ [Concomitant]
     Indication: CONSTIPATION
     Dosage: UNK
     Route: 048
     Dates: end: 20080601
  16. ELUTIT-CALCIUM [Concomitant]
     Indication: RENAL IMPAIRMENT
     Dosage: 15 MG, QD
     Route: 048
     Dates: end: 20080601
  17. CLEXANE [Concomitant]
     Indication: CORONARY ARTERY DISEASE
     Dosage: 40 MG, QD
     Route: 058

REACTIONS (2)
  - BRADYCARDIA [None]
  - HYPOTENSION [None]
